FAERS Safety Report 14498154 (Version 1)
Quarter: 2018Q1

REPORT INFORMATION
  Report Type: Spontaneous
  Country: US (occurrence: US)
  Receive Date: 20180206
  Receipt Date: 20180206
  Transmission Date: 20180509
  Serious: No
  Sender: FDA-Public Use
  Company Number: None

PATIENT
  Age: 75 Year
  Sex: Female
  Weight: 83.25 kg

DRUGS (7)
  1. PROLIA [Suspect]
     Active Substance: DENOSUMAB
     Indication: OSTEOPOROSIS
  2. OMEPROZOLE [Concomitant]
     Active Substance: OMEPRAZOLE
  3. PROBIITIC [Concomitant]
  4. NITROFURANTOIN MCR [Concomitant]
     Active Substance: NITROFURANTOIN
  5. VITAMINS [Concomitant]
     Active Substance: VITAMINS
  6. OSTEO BI-FLEX [Concomitant]
     Active Substance: CHONDROITIN SULFATE A\GLUCOSAMINE
  7. CALCIUM [Concomitant]
     Active Substance: CALCIUM

REACTIONS (3)
  - Urinary tract infection [None]
  - Gait disturbance [None]
  - Arthralgia [None]
